FAERS Safety Report 13590698 (Version 2)
Quarter: 2017Q2

REPORT INFORMATION
  Report Type: Report from Study
  Country: CN (occurrence: CN)
  Receive Date: 20170530
  Receipt Date: 20170608
  Transmission Date: 20170830
  Serious: Yes (Hospitalization, Congenital Anomaly, Other)
  Sender: FDA-Public Use
  Company Number: CN-KADMON PHARMACEUTICALS, LLC-KAD201705-000734

PATIENT
  Sex: Male

DRUGS (2)
  1. RIBAVIRIN. [Suspect]
     Active Substance: RIBAVIRIN
     Route: 050
  2. SOFOSBUVIR [Suspect]
     Active Substance: SOFOSBUVIR
     Route: 050

REACTIONS (7)
  - Premature baby [Recovered/Resolved]
  - Jaundice [Recovering/Resolving]
  - Exposure via father [Unknown]
  - Fallot^s tetralogy [Recovering/Resolving]
  - Atrial septal defect [Recovering/Resolving]
  - Low birth weight baby [Recovering/Resolving]
  - Coagulation disorder neonatal [Recovered/Resolved]
